FAERS Safety Report 6160128-5 (Version None)
Quarter: 2009Q2

REPORT INFORMATION
  Report Type: 
  Country: None (occurrence: None)
  Receive Date: 20090420
  Receipt Date: 20090410
  Transmission Date: 20091009
  Serious: Yes (Hospitalization, Congenital Anomaly)
  Sender: FDA-Public Use
  Company Number: A0680224A

PATIENT
  Sex: Female

DRUGS (4)
  1. PAXIL [Suspect]
     Indication: DEPRESSION
     Dosage: 50MG PER DAY
     Dates: start: 19990101, end: 20010323
  2. VITAMIN TAB [Concomitant]
  3. AMPICILLIN [Concomitant]
     Dates: start: 20000601
  4. RHOGAM [Concomitant]
     Dates: start: 20000912

REACTIONS (8)
  - ATRIAL SEPTAL DEFECT [None]
  - CARDIAC VALVE DISEASE [None]
  - DILATATION VENTRICULAR [None]
  - DRUG EXPOSURE DURING PREGNANCY [None]
  - MITRAL VALVE PROLAPSE [None]
  - PULMONARY VALVE INCOMPETENCE [None]
  - RIGHT ATRIAL DILATATION [None]
  - TRICUSPID VALVE INCOMPETENCE [None]
